FAERS Safety Report 22610569 (Version 1)
Quarter: 2023Q2

REPORT INFORMATION
  Report Type: Spontaneous
  Country: SE (occurrence: SE)
  Receive Date: 20230616
  Receipt Date: 20230616
  Transmission Date: 20230721
  Serious: Yes (Other)
  Sender: FDA-Public Use
  Company Number: None

PATIENT
  Age: 85 Year
  Sex: Female

DRUGS (1)
  1. OXYCODONE [Suspect]
     Active Substance: OXYCODONE
     Indication: Product used for unknown indication
     Dosage: FOR ACTIVE INGREDIENT OXYCODONE HYDROCHLORIDE THE STRENGTH IS 5 MILLIGRAMS.?FOR ACTIVE INGREDIENT OX
     Route: 065
     Dates: start: 20211202, end: 20211206

REACTIONS (1)
  - Hallucination [Recovered/Resolved]

NARRATIVE: CASE EVENT DATE: 20211206
